FAERS Safety Report 21899017 (Version 1)
Quarter: 2023Q1

REPORT INFORMATION
  Report Type: Spontaneous
  Country: US (occurrence: None)
  Receive Date: 20230120
  Receipt Date: 20230120
  Transmission Date: 20230418
  Serious: Yes (Hospitalization)
  Sender: FDA-Public Use
  Company Number: None

PATIENT
  Age: 63 Year
  Sex: Male
  Weight: 98.7 kg

DRUGS (4)
  1. TECARTUS [Suspect]
     Active Substance: BREXUCABTAGENE AUTOLEUCEL
  2. FLUDARABINE [Suspect]
     Active Substance: FLUDARABINE PHOSPHATE
  3. CYCLOPHOSPHAMIDE [Suspect]
     Active Substance: CYCLOPHOSPHAMIDE
  4. TOCILIZUMAB [Suspect]
     Active Substance: TOCILIZUMAB

REACTIONS (14)
  - Cytokine release syndrome [None]
  - Fatigue [None]
  - Infusion related reaction [None]
  - Pyrexia [None]
  - Malaise [None]
  - Myalgia [None]
  - Hypotension [None]
  - Oxygen saturation decreased [None]
  - C-reactive protein increased [None]
  - Serum ferritin increased [None]
  - Neurotoxicity [None]
  - Lethargy [None]
  - Aphasia [None]
  - Depressed level of consciousness [None]

NARRATIVE: CASE EVENT DATE: 20221214
